APPROVED DRUG PRODUCT: FLUOCINOLONE ACETONIDE
Active Ingredient: FLUOCINOLONE ACETONIDE
Strength: 0.01%
Dosage Form/Route: CREAM;TOPICAL
Application: A086810 | Product #001
Applicant: PERRIGO NEW YORK INC
Approved: Mar 4, 1982 | RLD: No | RS: No | Type: DISCN